FAERS Safety Report 5863940-2 (Version None)
Quarter: 2008Q3

REPORT INFORMATION
  Report Type: 
  Country: None (occurrence: None)
  Receive Date: 20080829
  Receipt Date: 20080823
  Transmission Date: 20090109
  Serious: Yes (Other)
  Sender: FDA-Public Use
  Company Number: DE-BRISTOL-MYERS SQUIBB COMPANY-14312912

PATIENT
  Age: 50 Year
  Sex: Female
  Weight: 60 kg

DRUGS (13)
  1. IRBESARTAN [Suspect]
     Dosage: KARVEA 300
  2. IBUPROFEN [Suspect]
     Dosage: IBUPROFEN 600
  3. ALLOPURINOL [Suspect]
  4. AMLODIPINE [Suspect]
     Dosage: AMLODIPINE 5
  5. ACETAMINOPHEN [Suspect]
     Dosage: BENURON 500
  6. BISOPROLOL FUMARATE [Suspect]
     Dosage: BISOPROLOL 5
  7. FLUOXETINE [Suspect]
     Dosage: 40 DOSAGE FORM=40 TABLETS.
  8. FURORESE [Suspect]
     Dosage: FURORESE 40
  9. KALINOR-RETARD P [Suspect]
     Dosage: KALINOR RETARD 600
  10. LEVOTHYROXINE SODIUM [Suspect]
  11. LYRICA [Suspect]
     Dosage: 28 DOSAGE FORM=28 TABLETS.
  12. RAMIPRIL [Suspect]
     Dosage: RAMIPRIL 5
  13. TOREM [Suspect]

REACTIONS (2)
  - HYPOTENSION [None]
  - SUICIDE ATTEMPT [None]
